FAERS Safety Report 16991453 (Version 9)
Quarter: 2020Q3

REPORT INFORMATION
  Report Type: Report from Study
  Country: US (occurrence: US)
  Receive Date: 20191104
  Receipt Date: 20200824
  Transmission Date: 20201102
  Serious: Yes (Hospitalization, Disabling)
  Sender: FDA-Public Use
  Company Number: US-ACTELION-A-NJ2019-190613

PATIENT
  Age: 66 Year
  Sex: Female

DRUGS (1)
  1. OPSUMIT [Suspect]
     Active Substance: MACITENTAN
     Indication: PULMONARY ARTERIAL HYPERTENSION
     Dosage: 10 MG, QD
     Route: 048
     Dates: start: 20160729

REACTIONS (17)
  - Gastrointestinal disorder [Unknown]
  - Cystitis [Unknown]
  - Dysphonia [Unknown]
  - Upper respiratory tract congestion [Unknown]
  - Cyst [Unknown]
  - Cyst removal [Unknown]
  - Anxiety [Unknown]
  - Migraine [Unknown]
  - Hospitalisation [Unknown]
  - Multiple allergies [Unknown]
  - Sinusitis [Not Recovered/Not Resolved]
  - Condition aggravated [Not Recovered/Not Resolved]
  - Dry mouth [Unknown]
  - Illness [Unknown]
  - Cough [Not Recovered/Not Resolved]
  - Urinary tract infection [Unknown]
  - Gastrointestinal inflammation [Unknown]

NARRATIVE: CASE EVENT DATE: 20190513
